FAERS Safety Report 18528251 (Version 1)
Quarter: 2020Q4

REPORT INFORMATION
  Report Type: Spontaneous
  Country: US (occurrence: US)
  Receive Date: 20201120
  Receipt Date: 20201120
  Transmission Date: 20210114
  Serious: No
  Sender: FDA-Public Use
  Company Number: US-PFIZER INC-2020453279

PATIENT
  Sex: Female

DRUGS (2)
  1. GABAPENTIN. [Suspect]
     Active Substance: GABAPENTIN
     Indication: ARTHRITIS
  2. GABAPENTIN. [Suspect]
     Active Substance: GABAPENTIN
     Indication: FIBROMYALGIA
     Dosage: 900 MG, DAILY (300 MG IN THE MORNING; 600 MG AT NIGHT)

REACTIONS (14)
  - Crying [Unknown]
  - Feeling abnormal [Unknown]
  - Periorbital swelling [Unknown]
  - Pyrexia [Unknown]
  - Depression [Unknown]
  - Lacrimation increased [Unknown]
  - Off label use [Unknown]
  - Chills [Unknown]
  - Rhinorrhoea [Unknown]
  - Illness [Unknown]
  - Tremor [Unknown]
  - Withdrawal syndrome [Unknown]
  - Anxiety [Unknown]
  - Product use in unapproved indication [Unknown]
